FAERS Safety Report 16803692 (Version 1)
Quarter: 2019Q3

REPORT INFORMATION
  Report Type: Spontaneous
  Country: FR (occurrence: FR)
  Receive Date: 20190913
  Receipt Date: 20190913
  Transmission Date: 20191005
  Serious: Yes (Hospitalization)
  Sender: FDA-Public Use
  Company Number: FR-TEVA-2019-FR-1105449

PATIENT
  Age: 19 Year
  Sex: Female

DRUGS (5)
  1. ALPRAZOLAM. [Suspect]
     Active Substance: ALPRAZOLAM
     Indication: BACK PAIN
     Route: 048
     Dates: start: 20190731, end: 20190816
  2. CODOLIPRANE [Suspect]
     Active Substance: ACETAMINOPHEN\CODEINE PHOSPHATE
     Indication: BACK PAIN
     Route: 048
     Dates: start: 20190816, end: 20190816
  3. LUMIRELAX (METHYL NICOTINATE\METHOCARBAMOL) [Suspect]
     Active Substance: METHOCARBAMOL\METHYL NICOTINATE
     Indication: BACK PAIN
     Route: 048
     Dates: start: 20190816, end: 20190816
  4. NAPROXENE [Suspect]
     Active Substance: NAPROXEN
     Indication: BACK PAIN
     Dosage: 1100 MG, 1 DAY
     Route: 048
     Dates: start: 20190731, end: 20190816
  5. PARACETAMOL [Suspect]
     Active Substance: ACETAMINOPHEN
     Indication: BACK PAIN
     Route: 048
     Dates: start: 20190731, end: 20190816

REACTIONS (1)
  - Pancreatitis acute [Recovering/Resolving]

NARRATIVE: CASE EVENT DATE: 20190816
